FAERS Safety Report 9257335 (Version 2)
Quarter: 2013Q2

REPORT INFORMATION
  Report Type: Spontaneous
  Country: US (occurrence: None)
  Receive Date: 20130423
  Receipt Date: 20130508
  Transmission Date: 20140414
  Serious: Yes (Other)
  Sender: FDA-Public Use
  Company Number: AUR-APL-2013-03198

PATIENT
  Age: 77 Year
  Sex: Male

DRUGS (3)
  1. LISINOPRIL [Suspect]
     Indication: PRODUCT USED FOR UNKNOWN INDICATION
     Dosage: 1 D
  2. 5-FU [Suspect]
     Indication: ACTINIC KERATOSIS
     Dosage: 0.5%
     Route: 061
  3. METFORMIN [Concomitant]

REACTIONS (7)
  - Pruritus [None]
  - Swelling [None]
  - Lip swelling [None]
  - Dysphonia [None]
  - Face oedema [None]
  - Oedema peripheral [None]
  - Angioedema [None]
